FAERS Safety Report 9300724 (Version 1)
Quarter: 2013Q2

REPORT INFORMATION
  Report Type: Spontaneous
  Country: US (occurrence: None)
  Receive Date: 20130520
  Receipt Date: 20130520
  Transmission Date: 20140414
  Serious: Yes (Other)
  Sender: FDA-Public Use
  Company Number: None

PATIENT
  Age: 11 Year
  Sex: Female
  Weight: 58.6 kg

DRUGS (10)
  1. LASIX [Concomitant]
  2. MANNITOL [Concomitant]
  3. MAG SULFATE [Concomitant]
  4. ETOPOSIDE [Suspect]
     Indication: GERM CELL CANCER
     Dosage: 270MG, Q20H, IV BOLUS
     Route: 040
     Dates: start: 20130502, end: 20130504
  5. CISPLATIN [Concomitant]
  6. ZOFRAN [Concomitant]
  7. BENADRYL [Concomitant]
  8. ATIVAN [Concomitant]
  9. PHENERGEN [Concomitant]
  10. BLEOMYCIN [Concomitant]

REACTIONS (1)
  - Respiratory disorder [None]
